FAERS Safety Report 26067869 (Version 1)
Quarter: 2025Q4

REPORT INFORMATION
  Report Type: Spontaneous
  Country: LB (occurrence: LB)
  Receive Date: 20251120
  Receipt Date: 20251120
  Transmission Date: 20260117
  Serious: Yes (Hospitalization, Other)
  Sender: SOMERSET THERAPEUTICS, LLC
  Company Number: LB-MIT-25-75-LB-2025-SOM-LIT-00442

PATIENT
  Age: 40 Year
  Sex: Female

DRUGS (2)
  1. ATROPINE SULFATE [Suspect]
     Active Substance: ATROPINE SULFATE
     Indication: Neuromuscular blockade reversal
     Dosage: 0.02 MG/KG
     Route: 042
  2. NEOSTIGMINE [Suspect]
     Active Substance: NEOSTIGMINE
     Indication: Neuromuscular blockade reversal
     Dosage: 0.04 MG/KG
     Route: 042

REACTIONS (2)
  - Ventricular fibrillation [Recovered/Resolved]
  - Stress cardiomyopathy [Recovered/Resolved]
